FAERS Safety Report 15367663 (Version 3)
Quarter: 2018Q4

REPORT INFORMATION
  Report Type: Report from Study
  Country: US (occurrence: US)
  Receive Date: 20180910
  Receipt Date: 20181030
  Transmission Date: 20190204
  Serious: Yes (Other)
  Sender: FDA-Public Use
  Company Number: US-RETROPHIN, INC.-2018RTN00041

PATIENT
  Age: 1 Year
  Sex: Male

DRUGS (2)
  1. CHOLBAM [Suspect]
     Active Substance: CHOLIC ACID
     Indication: CEREBROHEPATORENAL SYNDROME
     Dosage: 150 MG, DAILY (100 MG IN THE AM; 50 MG AT HS)
     Route: 048
     Dates: start: 201808, end: 20180826
  2. CHOLBAM [Suspect]
     Active Substance: CHOLIC ACID
     Dosage: 150 MG, DAILY (100 MG IN THE AM; 50 MG AT HS)
     Route: 048
     Dates: start: 20180828

REACTIONS (2)
  - Staphylococcal infection [Recovered/Resolved]
  - Lip swelling [Recovered/Resolved]

NARRATIVE: CASE EVENT DATE: 201808
